FAERS Safety Report 20849869 (Version 2)
Quarter: 2022Q2

REPORT INFORMATION
  Report Type: Report from Study
  Country: IN (occurrence: IN)
  Receive Date: 20220519
  Receipt Date: 20220531
  Transmission Date: 20220721
  Serious: Yes (Hospitalization)
  Sender: FDA-Public Use
  Company Number: IN-Merck Healthcare KGaA-9320470

PATIENT
  Sex: Male

DRUGS (1)
  1. CETUXIMAB [Suspect]
     Active Substance: CETUXIMAB
     Indication: Colorectal cancer metastatic
     Dosage: 700 MG, 2/M
     Route: 065
     Dates: start: 20211207

REACTIONS (7)
  - Bacterial sepsis [Unknown]
  - Hydronephrosis [Unknown]
  - Renal impairment [Unknown]
  - Hypotension [Unknown]
  - Urinary tract infection [Unknown]
  - Electrolyte imbalance [Recovered/Resolved]
  - Off label use [Unknown]
